FAERS Safety Report 24771533 (Version 2)
Quarter: 2025Q1

REPORT INFORMATION
  Report Type: Spontaneous
  Country: US (occurrence: US)
  Receive Date: 20241224
  Receipt Date: 20250319
  Transmission Date: 20250409
  Serious: Yes (Other)
  Sender: KYOWA
  Company Number: US-KYOWAKIRIN-2024KK028663

PATIENT

DRUGS (2)
  1. NOURIANZ [Suspect]
     Active Substance: ISTRADEFYLLINE
     Indication: Parkinsonism
     Dosage: 40 MG, QD
     Route: 048
     Dates: start: 20230929
  2. NOURIANZ [Suspect]
     Active Substance: ISTRADEFYLLINE
     Indication: Parkinson^s disease

REACTIONS (3)
  - Hallucination [Unknown]
  - Condition aggravated [Unknown]
  - Product dose omission issue [Unknown]
